FAERS Safety Report 5916381-3 (Version None)
Quarter: 2008Q4

REPORT INFORMATION
  Report Type: 
  Country: None (occurrence: None)
  Receive Date: 20081013
  Receipt Date: 20081006
  Transmission Date: 20090506
  Serious: Yes (Death, Hospitalization)
  Sender: FDA-Public Use
  Company Number: BR-WYE-H06121408

PATIENT

DRUGS (1)
  1. TAZOCIN [Suspect]
     Dosage: UNKNOWN
     Route: 042
     Dates: end: 20080926

REACTIONS (5)
  - ALANINE AMINOTRANSFERASE INCREASED [None]
  - ASPARTATE AMINOTRANSFERASE INCREASED [None]
  - DEATH [None]
  - SEPSIS [None]
  - THROMBOCYTOPENIA [None]
